FAERS Safety Report 4618917-1 (Version None)
Quarter: 2005Q2

REPORT INFORMATION
  Report Type: 
  Country: None (occurrence: None)
  Receive Date: 20050310
  Receipt Date: 20041111
  Transmission Date: 20051028
  Serious: Yes (Hospitalization)
  Sender: FDA-Public Use
  Company Number: F03200400108

PATIENT
  Age: 77 Year
  Sex: Male

DRUGS (4)
  1. ELOXATIN [Suspect]
     Indication: COLORECTAL CANCER METASTATIC
     Dosage: 159 MG OTHER - INTRAVENOUS NOS
     Route: 042
     Dates: start: 20040922, end: 20040922
  2. ERBITUX - CETUXIMAB - SOLUTION [Suspect]
     Indication: COLORECTAL CANCER METASTATIC
     Dosage: INTRAVENOUS NOS
     Route: 042
     Dates: start: 20040929, end: 20040929
  3. FLUOROURACIL [Suspect]
     Indication: COLORECTAL CANCER METASTATIC
     Dosage: INTRAVENOUS NOS
     Route: 042
     Dates: start: 20040922, end: 20040922
  4. LEUCOVORIN CALCIUM [Suspect]
     Indication: COLORECTAL CANCER METASTATIC
     Dosage: INTRAVENOUS NOS
     Route: 042
     Dates: start: 20040922, end: 20040922

REACTIONS (2)
  - DEHYDRATION [None]
  - DIARRHOEA [None]
